FAERS Safety Report 20933456 (Version 1)
Quarter: 2022Q2

REPORT INFORMATION
  Report Type: Spontaneous
  Country: AU (occurrence: AU)
  Receive Date: 20220608
  Receipt Date: 20220608
  Transmission Date: 20220720
  Serious: Yes (Death, Hospitalization, Other)
  Sender: FDA-Public Use
  Company Number: AU-CELGENE-AUS-20211107366

PATIENT
  Age: 87 Year
  Sex: Male
  Weight: 74 kg

DRUGS (9)
  1. AZACITIDINE [Suspect]
     Active Substance: AZACITIDINE
     Indication: Acute myeloid leukaemia
     Dosage: 132 MILLIGRAM
     Route: 042
     Dates: start: 20211115
  2. AZACITIDINE [Suspect]
     Active Substance: AZACITIDINE
     Route: 042
     Dates: start: 20211118
  3. BGB-11417 [Suspect]
     Active Substance: BGB-11417
     Indication: Acute myeloid leukaemia
     Dosage: 20 MILLIGRAM
     Route: 048
     Dates: start: 20211116
  4. BGB-11417 [Suspect]
     Active Substance: BGB-11417
     Dosage: 80 MILLIGRAM
     Route: 048
     Dates: start: 20211118
  5. ALLOPURINOL [Concomitant]
     Active Substance: ALLOPURINOL
     Indication: Product used for unknown indication
     Route: 065
     Dates: start: 20211112, end: 20211124
  6. CEPHALEXIN [Concomitant]
     Active Substance: CEPHALEXIN
     Indication: Product used for unknown indication
     Route: 065
     Dates: start: 20211115, end: 20211115
  7. PRAVASTATIN SODIUM [Concomitant]
     Active Substance: PRAVASTATIN SODIUM
     Indication: Product used for unknown indication
     Route: 065
     Dates: start: 2011, end: 20211129
  8. DIGOXIN [Concomitant]
     Active Substance: DIGOXIN
     Indication: Product used for unknown indication
     Route: 065
     Dates: start: 20211109, end: 20220114
  9. DOCUSATE SODIUM\SENNOSIDES A AND B [Concomitant]
     Active Substance: DOCUSATE SODIUM\SENNOSIDES A AND B
     Indication: Product used for unknown indication
     Route: 065
     Dates: start: 20211116, end: 20211226

REACTIONS (2)
  - Febrile neutropenia [Recovered/Resolved]
  - Death [Fatal]

NARRATIVE: CASE EVENT DATE: 20211118
